FAERS Safety Report 10109699 (Version 1)
Quarter: 2014Q2

REPORT INFORMATION
  Report Type: Spontaneous
  Country: GB (occurrence: None)
  Receive Date: 20140423
  Receipt Date: 20140423
  Transmission Date: 20141212
  Serious: Yes (Hospitalization)
  Sender: FDA-Public Use
  Company Number: FK201401397

PATIENT
  Age: 71 Year
  Sex: Female

DRUGS (4)
  1. FLUOROURACIL (MANUFACTURER UNKNOWN) (FLUOROURACIL) (FLUOROURACIL) [Suspect]
     Indication: PANCREATIC CARCINOMA METASTATIC
  2. OXALIPLATIN (MANUFACTURER UNKNOWN) (OXALIPLATIN) (OXALIPLATIN) [Suspect]
     Indication: PANCREATIC CARCINOMA METASTATIC
  3. IRINOTECAN (MANUFACTURER UNKNOWN) (IRINOTECAN) (IRINOTECAN) [Suspect]
     Indication: PANCREATIC CARCINOMA METASTATIC
  4. GRANULOCYTE COLONY-STIMULATING FACTOR NOS [Concomitant]

REACTIONS (17)
  - Neutropenic sepsis [None]
  - Mucosal inflammation [None]
  - Nausea [None]
  - Vomiting [None]
  - Diarrhoea [None]
  - Alopecia [None]
  - Thrombocytopenia [None]
  - Aphagia [None]
  - Weight decreased [None]
  - Dehydration [None]
  - Tachycardia [None]
  - Orthostatic hypotension [None]
  - Melaena [None]
  - Gastrointestinal ulcer [None]
  - Chest pain [None]
  - Alopecia [None]
  - Malignant neoplasm progression [None]
